FAERS Safety Report 4831581-1 (Version None)
Quarter: 2005Q4

REPORT INFORMATION
  Report Type: 
  Country: None (occurrence: None)
  Receive Date: 20051118
  Receipt Date: 20050907
  Transmission Date: 20060501
  Serious: Yes (Hospitalization)
  Sender: FDA-Public Use
  Company Number: US-MERCK-0509USA00939

PATIENT
  Age: 78 Year
  Sex: Male
  Weight: 95 kg

DRUGS (5)
  1. VIOXX [Suspect]
     Indication: ARTHRITIS
     Route: 048
     Dates: start: 20010201, end: 20031218
  2. VIOXX [Suspect]
     Route: 048
     Dates: start: 20031201
  3. CARDON [Concomitant]
     Route: 065
  4. CARDURA [Concomitant]
     Indication: HYPERTENSION
     Route: 065
  5. ZIAC [Concomitant]
     Route: 065

REACTIONS (7)
  - BRADYCARDIA [None]
  - CEREBROVASCULAR ACCIDENT [None]
  - DILATATION ATRIAL [None]
  - DYSPNOEA EXERTIONAL [None]
  - HIGH DENSITY LIPOPROTEIN DECREASED [None]
  - MITRAL VALVE INCOMPETENCE [None]
  - TRICUSPID VALVE INCOMPETENCE [None]
